FAERS Safety Report 23320569 (Version 2)
Quarter: 2024Q3

REPORT INFORMATION
  Report Type: Spontaneous
  Country: US (occurrence: US)
  Receive Date: 20231220
  Receipt Date: 20240703
  Transmission Date: 20241017
  Serious: No
  Sender: PFIZER
  Company Number: US-PFIZER INC-202300444245

PATIENT
  Age: 64 Year
  Sex: Female
  Weight: 56.7 kg

DRUGS (1)
  1. AZITHROMYCIN [Suspect]
     Active Substance: AZITHROMYCIN
     Dosage: UNK

REACTIONS (4)
  - Swelling [Unknown]
  - Cardiac disorder [Unknown]
  - Dyspnoea [Unknown]
  - Drug hypersensitivity [Unknown]
